FAERS Safety Report 5941512-9 (Version None)
Quarter: 2008Q4

REPORT INFORMATION
  Report Type: 
  Country: None (occurrence: None)
  Receive Date: 20081103
  Receipt Date: 20081103
  Transmission Date: 20090506
  Serious: Yes (Life-Threatening)
  Sender: FDA-Public Use
  Company Number: None

PATIENT
  Sex: Male
  Weight: 95.709 kg

DRUGS (1)
  1. CILOSTAZOL [Suspect]
     Indication: POOR PERIPHERAL CIRCULATION
     Dosage: 100MG TWICE DAILY PO
     Route: 048
     Dates: start: 20081017, end: 20081019

REACTIONS (1)
  - MYOCARDIAL INFARCTION [None]
